FAERS Safety Report 16691830 (Version 1)
Quarter: 2019Q3

REPORT INFORMATION
  Report Type: Spontaneous
  Country: GB (occurrence: GB)
  Receive Date: 20190812
  Receipt Date: 20190812
  Transmission Date: 20191004
  Serious: Yes (Other)
  Sender: FDA-Public Use
  Company Number: GB-ACCORD-151227

PATIENT
  Age: 64 Year
  Sex: Male
  Weight: 67 kg

DRUGS (12)
  1. MEBEVERINE [Concomitant]
     Active Substance: MEBEVERINE
     Dates: start: 20180723
  2. MONTELUKAST [Concomitant]
     Active Substance: MONTELUKAST SODIUM
     Dates: start: 20180723
  3. TAMSULOSIN [Concomitant]
     Active Substance: TAMSULOSIN
     Dates: start: 20190528
  4. RAMIPRIL. [Suspect]
     Active Substance: RAMIPRIL
     Indication: PRODUCT USED FOR UNKNOWN INDICATION
     Dates: start: 20190417, end: 20190722
  5. METOSYN [Concomitant]
     Dosage: APPLY1-2 TIMES DAILY FOR HANDS
     Dates: start: 20180723
  6. PREDNISOLONE. [Concomitant]
     Active Substance: PREDNISOLONE
     Dosage: SIX TO BE TAKEN DAILY IF EXACERBATION OF ATOPIC...
     Dates: start: 20180723
  7. CLARITHROMYCIN. [Concomitant]
     Active Substance: CLARITHROMYCIN
     Dosage: FOR EXACERBATIONS
     Dates: start: 20180723
  8. TIOTROPIUM/TIOTROPIUM BROMIDE [Concomitant]
     Dosage: AT THE SAME TIME OF DAY
     Route: 055
     Dates: start: 20190415
  9. CANDESARTAN. [Concomitant]
     Active Substance: CANDESARTAN
     Dates: start: 20190722
  10. VENTOLIN [Concomitant]
     Active Substance: ALBUTEROL SULFATE
     Dosage: PUFFS
     Dates: start: 20180723
  11. FLUTICASONE. [Concomitant]
     Active Substance: FLUTICASONE
     Dosage: PUFF
     Dates: start: 20180723
  12. CARBOCISTEINE/CARBOCISTEINE LYSINE/CARBOCISTEINE SODIUM [Concomitant]
     Dates: start: 20180723

REACTIONS (2)
  - Asthma [Recovering/Resolving]
  - Bronchospasm [Recovering/Resolving]

NARRATIVE: CASE EVENT DATE: 20190708
